FAERS Safety Report 15798652 (Version 1)
Quarter: 2019Q1

REPORT INFORMATION
  Report Type: Spontaneous
  Country: US (occurrence: US)
  Receive Date: 20190108
  Receipt Date: 20190108
  Transmission Date: 20190417
  Serious: No
  Sender: FDA-Public Use
  Company Number: US-SA-2019SA002367

PATIENT
  Age: 74 Year
  Sex: Male

DRUGS (19)
  1. RAMIPRIL. [Concomitant]
     Active Substance: RAMIPRIL
  2. PRALUENT [Suspect]
     Active Substance: ALIROCUMAB
     Indication: TYPE IIA HYPERLIPIDAEMIA
     Dosage: 75 MG, QOW
     Route: 058
     Dates: start: 201804, end: 201809
  3. MULTIVITAMINS [VITAMINS NOS] [Concomitant]
     Active Substance: VITAMINS
  4. CALCIUM CARBONATE. [Concomitant]
     Active Substance: CALCIUM CARBONATE
  5. KRILL OIL [Concomitant]
     Active Substance: DIETARY SUPPLEMENT
  6. HYDROCODONE/ACETAMINOPHEN [Concomitant]
     Active Substance: ACETAMINOPHEN\HYDROCODONE
  7. CEPHALEXIN [CEFALEXIN] [Concomitant]
     Active Substance: CEPHALEXIN
  8. PAROXETINE HCL [Concomitant]
     Active Substance: PAROXETINE HYDROCHLORIDE
  9. COENZYME Q10 [Concomitant]
     Active Substance: UBIDECARENONE
  10. FISH OIL [Concomitant]
     Active Substance: FISH OIL
  11. ZETIA [Concomitant]
     Active Substance: EZETIMIBE
  12. PREDNISONE. [Concomitant]
     Active Substance: PREDNISONE
  13. PRALUENT [Suspect]
     Active Substance: ALIROCUMAB
     Dosage: 75 MG, QOW
     Route: 058
     Dates: start: 201812
  14. ASPIRIN EC [Concomitant]
     Active Substance: ASPIRIN
  15. VITAMIN D3 [Concomitant]
     Active Substance: CHOLECALCIFEROL
  16. DONEPEZIL HCL [Concomitant]
     Active Substance: DONEPEZIL HYDROCHLORIDE
  17. EZETIMIBE. [Concomitant]
     Active Substance: EZETIMIBE
  18. DILT-XR [Concomitant]
     Active Substance: DILTIAZEM
  19. CLOPIDOGREL [Concomitant]
     Active Substance: CLOPIDOGREL BISULFATE

REACTIONS (1)
  - Myalgia [Recovered/Resolved]

NARRATIVE: CASE EVENT DATE: 2018
